FAERS Safety Report 6597945-3 (Version None)
Quarter: 2010Q1

REPORT INFORMATION
  Report Type: 
  Country: None (occurrence: None)
  Receive Date: 20100223
  Receipt Date: 20091228
  Transmission Date: 20100710
  Serious: No
  Sender: FDA-Public Use
  Company Number: US-ALLERGAN-0917271US

PATIENT
  Sex: Female

DRUGS (1)
  1. BOTOX [Suspect]
     Indication: HYPERHIDROSIS
     Dosage: 160 UNITS, SINGLE
     Route: 023
     Dates: start: 20091106, end: 20091106

REACTIONS (2)
  - DYSPHONIA [None]
  - DYSPNOEA [None]
